FAERS Safety Report 18672410 (Version 6)
Quarter: 2021Q3

REPORT INFORMATION
  Report Type: Spontaneous
  Country: JP (occurrence: JP)
  Receive Date: 20201229
  Receipt Date: 20210828
  Transmission Date: 20211014
  Serious: Yes (Hospitalization, Other)
  Sender: FDA-Public Use
  Company Number: JP-JNJFOC-20201250370

PATIENT
  Age: 28 Year
  Sex: Female

DRUGS (11)
  1. STELARA [Suspect]
     Active Substance: USTEKINUMAB
     Indication: CROHN^S DISEASE
     Dosage: DOSE UNKNOWN, USTEKINUMAB (GENETICAL RECOMBINATION):130MG, 45 MG
     Route: 041
     Dates: start: 201707
  2. REMICADE [Suspect]
     Active Substance: INFLIXIMAB
     Indication: CROHN^S DISEASE
  3. AZANIN [Suspect]
     Active Substance: AZATHIOPRINE
     Indication: CROHN^S DISEASE
     Route: 065
  4. ELENTAL [Concomitant]
     Active Substance: AMINO ACIDS\CARBOHYDRATES\MINERALS\SOYBEAN OIL\VITAMINS
     Route: 048
     Dates: start: 201604
  5. STELARA [Suspect]
     Active Substance: USTEKINUMAB
     Indication: CROHN^S DISEASE
     Dosage: DOSE UNKNOWN, USTEKINUMAB (GENETICAL RECOMBINATION):130MG, 45 MG
     Route: 058
     Dates: start: 20200611, end: 20200806
  6. STELARA [Suspect]
     Active Substance: USTEKINUMAB
     Dosage: DOSE UNKNOWN, USTEKINUMAB (GENETICAL RECOMBINATION):130MG, 45 MG
     Route: 058
     Dates: start: 20201029
  7. AZANIN [Suspect]
     Active Substance: AZATHIOPRINE
     Indication: CROHN^S DISEASE
     Route: 048
     Dates: start: 201604, end: 20200911
  8. FAMOTIDINE. [Concomitant]
     Active Substance: FAMOTIDINE
     Indication: PRURITUS
     Route: 048
     Dates: start: 20200607
  9. REMICADE [Suspect]
     Active Substance: INFLIXIMAB
     Indication: CROHN^S DISEASE
     Route: 042
     Dates: start: 201604
  10. CHOLEBINE [Concomitant]
     Active Substance: COLESTILAN CHLORIDE
     Indication: DIARRHOEA
     Route: 048
     Dates: start: 20200611
  11. ENTYVIO [Concomitant]
     Active Substance: VEDOLIZUMAB
     Indication: CROHN^S DISEASE
     Route: 041

REACTIONS (5)
  - Extrapulmonary tuberculosis [Recovered/Resolved]
  - Infusion related reaction [Recovered/Resolved]
  - Pericarditis tuberculous [Recovered/Resolved]
  - Cardiac tamponade [Recovered/Resolved]
  - Lymph node tuberculosis [Recovered/Resolved]

NARRATIVE: CASE EVENT DATE: 20200911
